FAERS Safety Report 17448732 (Version 1)
Quarter: 2020Q1

REPORT INFORMATION
  Report Type: Spontaneous
  Country: US (occurrence: US)
  Receive Date: 20200224
  Receipt Date: 20200224
  Transmission Date: 20200409
  Serious: No
  Sender: FDA-Public Use
  Company Number: US-TEVA-2020-US-1188875

PATIENT
  Age: 68 Year
  Sex: Female

DRUGS (1)
  1. ATENOLOL TEVA [Suspect]
     Active Substance: ATENOLOL
     Route: 065

REACTIONS (2)
  - Dyspepsia [Unknown]
  - Product substitution issue [Unknown]
